FAERS Safety Report 20373574 (Version 2)
Quarter: 2022Q1

REPORT INFORMATION
  Report Type: Spontaneous
  Country: CO (occurrence: CO)
  Receive Date: 20220125
  Receipt Date: 20220308
  Transmission Date: 20220423
  Serious: No
  Sender: FDA-Public Use
  Company Number: CO-PFIZER INC-202101869534

PATIENT
  Age: 11 Year
  Sex: Female

DRUGS (1)
  1. GENOTROPIN [Suspect]
     Active Substance: SOMATROPIN
     Indication: Growth hormone deficiency
     Dosage: 0.8MG ALTERNED WITH  0.6 MG, DAILY
     Route: 058
     Dates: start: 20211223

REACTIONS (3)
  - Device failure [Unknown]
  - Drug dose omission by device [Recovered/Resolved]
  - Extra dose administered [Unknown]

NARRATIVE: CASE EVENT DATE: 20211224
